FAERS Safety Report 14447952 (Version 1)
Quarter: 2018Q1

REPORT INFORMATION
  Report Type: Spontaneous
  Country: US (occurrence: US)
  Receive Date: 20180126
  Receipt Date: 20180126
  Transmission Date: 20180509
  Serious: No
  Sender: FDA-Public Use
  Company Number: US-BRACCO DIAGNOSTICS, INC.-2017US04979

PATIENT
  Sex: Male

DRUGS (1)
  1. E-Z-HD [Suspect]
     Active Substance: BARIUM SULFATE
     Indication: X-RAY WITH CONTRAST UPPER GASTROINTESTINAL TRACT
     Dosage: 400 ML, SINGLE
     Route: 048
     Dates: start: 20171031, end: 20171031

REACTIONS (2)
  - No adverse event [None]
  - Liquid product physical issue [Unknown]

NARRATIVE: CASE EVENT DATE: 20171031
